FAERS Safety Report 9193560 (Version 1)
Quarter: 2013Q1

REPORT INFORMATION
  Report Type: Spontaneous
  Country: US (occurrence: US)
  Receive Date: 20130327
  Receipt Date: 20130327
  Transmission Date: 20140127
  Serious: Yes (Other)
  Sender: FDA-Public Use
  Company Number: US-BRISTOL-MYERS SQUIBB COMPANY-18698431

PATIENT
  Sex: Male

DRUGS (2)
  1. WARFARIN SODIUM [Suspect]
  2. COUMADIN [Suspect]

REACTIONS (4)
  - Transient ischaemic attack [Unknown]
  - Amnesia [Unknown]
  - Abasia [Unknown]
  - Dyspnoea [Unknown]
